FAERS Safety Report 10330402 (Version 1)
Quarter: 2014Q3

REPORT INFORMATION
  Report Type: Spontaneous
  Country: US (occurrence: US)
  Receive Date: 20140722
  Receipt Date: 20140722
  Transmission Date: 20150326
  Serious: No
  Sender: FDA-Public Use
  Company Number: US-009507513-1407USA009695

PATIENT
  Sex: Female
  Weight: 106.58 kg

DRUGS (1)
  1. IMPLANON [Suspect]
     Active Substance: ETONOGESTREL
     Indication: CONTRACEPTION
     Dosage: 68 MG (STRENGTH: 68 (UNITS UNSPECIFIED)), UNK
     Route: 059
     Dates: start: 201212

REACTIONS (2)
  - Swelling [Unknown]
  - Cellulitis [Unknown]
